FAERS Safety Report 5036350-8 (Version None)
Quarter: 2006Q2

REPORT INFORMATION
  Report Type: 
  Country: None (occurrence: None)
  Receive Date: 20060601
  Receipt Date: 20060204
  Transmission Date: 20061013
  Serious: No
  Sender: FDA-Public Use
  Company Number: 2006PV008168

PATIENT
  Age: 57 Year
  Sex: Female
  Weight: 94.3482 kg

DRUGS (13)
  1. BYETTA [Suspect]
     Indication: DIABETES MELLITUS NON-INSULIN-DEPENDENT
     Dosage: SEE IMAGE
     Route: 058
     Dates: start: 20051014, end: 20051114
  2. BYETTA [Suspect]
     Indication: DIABETES MELLITUS NON-INSULIN-DEPENDENT
     Dosage: SEE IMAGE
     Route: 058
     Dates: start: 20051115
  3. PAXIL [Concomitant]
  4. KLONOPIN [Concomitant]
  5. GLUCOPHAGE [Concomitant]
  6. ZOCOR [Concomitant]
  7. PREVACID [Concomitant]
  8. LANTUS [Concomitant]
  9. NEULASTA [Concomitant]
  10. ARANESP [Concomitant]
  11. FLUOROURACIL [Concomitant]
  12. EPIRUBICIN [Concomitant]
  13. CYCLOPHOSPHAMIDE [Concomitant]

REACTIONS (8)
  - ABDOMINAL DISTENSION [None]
  - BONE PAIN [None]
  - CHEST DISCOMFORT [None]
  - CHEST PAIN [None]
  - CONSTIPATION [None]
  - EYE DISORDER [None]
  - HELICOBACTER INFECTION [None]
  - MUSCLE SPASMS [None]
